FAERS Safety Report 10044858 (Version 1)
Quarter: 2014Q1

REPORT INFORMATION
  Report Type: Other
  Country: GB (occurrence: GB)
  Receive Date: 20140328
  Receipt Date: 20140328
  Transmission Date: 20141002
  Serious: Yes (Hospitalization, Disabling, Other)
  Sender: FDA-Public Use
  Company Number: GB-TAKEDA-2014TEU002530

PATIENT
  Age: 65 Year
  Sex: Female
  Weight: 115 kg

DRUGS (11)
  1. PIOGLITAZONE [Suspect]
     Indication: TYPE 2 DIABETES MELLITUS
     Dosage: 45 MG, UNK
     Route: 048
     Dates: start: 20110516, end: 20140313
  2. ATORVASTATIN [Concomitant]
  3. CITALOPRAM HYDROBROMIDE [Concomitant]
  4. CANDESARTAN [Concomitant]
  5. DIGOXIN [Concomitant]
  6. DILTIAZEM HYDROCHLORIDE [Concomitant]
  7. FUROSEMIDE [Concomitant]
  8. METFORMIN HYDROCHLORIDE [Concomitant]
  9. SOLIFENACIN [Concomitant]
  10. TRIMETHOPRIM [Concomitant]
  11. WARFARIN [Concomitant]

REACTIONS (3)
  - Joint swelling [Unknown]
  - Dyspnoea [Unknown]
  - Cardiac failure congestive [Recovering/Resolving]
